FAERS Safety Report 6608855-7 (Version None)
Quarter: 2010Q1

REPORT INFORMATION
  Report Type: 
  Country: None (occurrence: None)
  Receive Date: 20100225
  Receipt Date: 20100225
  Transmission Date: 20100710
  Serious: No
  Sender: FDA-Public Use
  Company Number: None

PATIENT

DRUGS (1)
  1. CLONIDINE [Suspect]
     Dosage: .2 MILLILITERS
     Dates: start: 20100209

REACTIONS (1)
  - PRODUCT QUALITY ISSUE [None]
